FAERS Safety Report 5172321-9 (Version None)
Quarter: 2006Q4

REPORT INFORMATION
  Report Type: 
  Country: None (occurrence: None)
  Receive Date: 20061205
  Receipt Date: 20061127
  Transmission Date: 20070319
  Serious: Yes (Hospitalization, Other)
  Sender: FDA-Public Use
  Company Number: 2006125611

PATIENT
  Age: 70 Year
  Sex: Female

DRUGS (16)
  1. LYRICA [Suspect]
     Indication: BACK PAIN
     Dosage: 150 MG (50 MG, 3 IN 1 D)
     Dates: start: 20060901, end: 20061003
  2. LYRICA [Suspect]
     Indication: NEUROPATHY PERIPHERAL
     Dosage: 150 MG (50 MG, 3 IN 1 D)
     Dates: start: 20060901, end: 20061003
  3. OXYCONTIN [Suspect]
     Dosage: 15 MG (5 MG, 3 IN 1 D)
  4. ELAVIL [Concomitant]
  5. ATIVAN [Concomitant]
  6. TRILAFON [Concomitant]
  7. LIDOCAINE [Concomitant]
  8. ZELNORM [Concomitant]
  9. CELEBREX [Concomitant]
  10. LEVOTHYROXINE SODIUM [Concomitant]
  11. MIRALAX [Concomitant]
  12. NEXIUM [Concomitant]
  13. PLAVIX [Concomitant]
  14. QUININE SULFATE [Concomitant]
  15. TOPROL-XL [Concomitant]
  16. ZOCOR [Concomitant]

REACTIONS (4)
  - CONFUSIONAL STATE [None]
  - DRUG INTERACTION [None]
  - MENTAL STATUS CHANGES [None]
  - OVERDOSE [None]
